FAERS Safety Report 4626825-5 (Version None)
Quarter: 2005Q2

REPORT INFORMATION
  Report Type: 
  Country: None (occurrence: None)
  Receive Date: 20050401
  Receipt Date: 20050401
  Transmission Date: 20051028
  Serious: No
  Sender: FDA-Public Use
  Company Number: None

PATIENT
  Sex: Male
  Weight: 71.4 kg

DRUGS (2)
  1. FLUOROURACIL [Suspect]
     Dosage: IV PUSH DAYS 1-5 AT 425 MG/M2
     Route: 042
     Dates: start: 20050321
  2. LEUCOVORIN CALCIUM [Suspect]
     Dosage: 20 MG/M2 ON DAYS 1-5

REACTIONS (5)
  - DRUG TOXICITY [None]
  - FATIGUE [None]
  - POST PROCEDURAL DIARRHOEA [None]
  - POST PROCEDURAL NAUSEA [None]
  - STOMATITIS [None]
